FAERS Safety Report 7221671-0 (Version None)
Quarter: 2011Q1

REPORT INFORMATION
  Report Type: 
  Country: None (occurrence: None)
  Receive Date: 20110112
  Receipt Date: 20110105
  Transmission Date: 20110831
  Serious: Yes (Other)
  Sender: FDA-Public Use
  Company Number: US-ROCHE-751999

PATIENT
  Sex: Male
  Weight: 21.3 kg

DRUGS (11)
  1. ACTEMRA [Suspect]
     Dosage: DOSE: 60; FORM: INFUSION; OTHER INDICATION: RHEUMATOID ARTHRITIS
     Route: 042
     Dates: start: 20100731, end: 20100731
  2. ACTEMRA [Suspect]
     Route: 042
     Dates: start: 20101214
  3. PREDNISONE [Concomitant]
     Dosage: DOSE: 1.7 ML OR 5 MG
  4. ZANTAC [Concomitant]
     Dosage: DOSE: 15 MG/ML
  5. ACTEMRA [Suspect]
     Route: 042
     Dates: start: 20100801, end: 20100801
  6. METHOTREXATE [Concomitant]
     Dosage: DOSE: 1 CC/WEEK (250 MG/10 ML)
  7. ACTEMRA [Suspect]
     Route: 042
     Dates: start: 20101001, end: 20101001
  8. PROZAC [Concomitant]
     Dosage: DOSE: 20 MG/ 5 ML
  9. NAPROXEN [Concomitant]
     Dosage: DOSE: 125 MG/5 ML
  10. ACTEMRA [Suspect]
     Route: 042
     Dates: start: 20100901, end: 20100901
  11. ACTEMRA [Suspect]
     Route: 042
     Dates: start: 20101101, end: 20101101

REACTIONS (8)
  - PAPILLOEDEMA [None]
  - HEADACHE [None]
  - AXILLARY PAIN [None]
  - HAEMOGLOBIN DECREASED [None]
  - NASAL CONGESTION [None]
  - COUGH [None]
  - CONDITION AGGRAVATED [None]
  - PYREXIA [None]
